FAERS Safety Report 9259887 (Version 2)
Quarter: 2013Q3

REPORT INFORMATION
  Report Type: Spontaneous
  Country: US (occurrence: US)
  Receive Date: 20130429
  Receipt Date: 20130705
  Transmission Date: 20140515
  Serious: Yes (Hospitalization, Disabling, Other)
  Sender: FDA-Public Use
  Company Number: US-ASTRAZENECA-2013SE27526

PATIENT
  Sex: Female
  Weight: 77.1 kg

DRUGS (16)
  1. NEXIUM [Suspect]
     Indication: GASTROOESOPHAGEAL REFLUX DISEASE
     Dosage: DAILY
     Route: 048
     Dates: start: 2004, end: 2010
  2. NEXIUM [Suspect]
     Indication: GASTROOESOPHAGEAL REFLUX DISEASE
     Route: 048
     Dates: start: 20070628
  3. OMEPRAZOLE [Suspect]
     Route: 048
     Dates: start: 20091109
  4. PAXIL [Concomitant]
  5. SIMVASTATIN [Concomitant]
  6. MULTIVITAMIN [Concomitant]
  7. PREVACID [Concomitant]
  8. LYRICA [Concomitant]
  9. AMOXICILLIN [Concomitant]
     Dates: start: 20070408
  10. DETROL [Concomitant]
     Dates: start: 20070517
  11. TRAMADOL HCL [Concomitant]
     Dates: start: 20070607
  12. XALANTAN [Concomitant]
     Dates: start: 20070613
  13. CLARINEX [Concomitant]
     Dates: start: 20070801
  14. LIPITOR [Concomitant]
     Dates: start: 20070910
  15. NABUMETONE [Concomitant]
     Dates: start: 20070910
  16. LEVAQUIN [Concomitant]
     Dates: start: 20071227

REACTIONS (17)
  - Lymphadenopathy [Unknown]
  - Back injury [Unknown]
  - Allergy to chemicals [Unknown]
  - Neoplasm [Unknown]
  - Ovarian disorder [Unknown]
  - Fallopian tube disorder [Unknown]
  - Gallbladder disorder [Unknown]
  - Cervical vertebral fracture [Unknown]
  - Hand fracture [Unknown]
  - Muscle rupture [Unknown]
  - Cartilage injury [Unknown]
  - Arthropathy [Unknown]
  - Osteoporosis [Unknown]
  - Bone disorder [Unknown]
  - Multiple fractures [Unknown]
  - Pain [Unknown]
  - Depression [Unknown]
